FAERS Safety Report 5238820-6 (Version None)
Quarter: 2007Q1

REPORT INFORMATION
  Report Type: 
  Country: None (occurrence: None)
  Receive Date: 20070215
  Receipt Date: 20070206
  Transmission Date: 20070707
  Serious: Yes (Other)
  Sender: FDA-Public Use
  Company Number: DE-PFIZER INC-2006149822

PATIENT
  Sex: Female
  Weight: 103 kg

DRUGS (2)
  1. ATORVASTATIN CALCIUM [Suspect]
     Indication: HYPERCHOLESTEROLAEMIA
     Dosage: DAILY DOSE:20MG
     Route: 048
  2. CEFUHEXAL [Suspect]
     Route: 048
     Dates: start: 20061101, end: 20061101

REACTIONS (11)
  - ALANINE AMINOTRANSFERASE INCREASED [None]
  - ANAPHYLACTIC SHOCK [None]
  - ASPARTATE AMINOTRANSFERASE INCREASED [None]
  - BLOOD IMMUNOGLOBULIN G INCREASED [None]
  - BLOOD URIC ACID INCREASED [None]
  - BRONCHITIS [None]
  - GAMMA-GLUTAMYLTRANSFERASE INCREASED [None]
  - HERPES ZOSTER [None]
  - HYPOAESTHESIA [None]
  - MOTOR DYSFUNCTION [None]
  - PARAESTHESIA [None]
